FAERS Safety Report 9135753 (Version 1)
Quarter: 2013Q1

REPORT INFORMATION
  Report Type: Spontaneous
  Country: CA (occurrence: CA)
  Receive Date: 20130304
  Receipt Date: 20130304
  Transmission Date: 20140127
  Serious: Yes (Hospitalization, Other)
  Sender: FDA-Public Use
  Company Number: CA-PFIZER INC-2012316826

PATIENT
  Age: 74 Year
  Sex: Female
  Weight: 60 kg

DRUGS (6)
  1. XALKORI [Suspect]
     Indication: LUNG NEOPLASM MALIGNANT
     Dosage: 250 MG, 2X/DAY
     Route: 048
     Dates: start: 20121105, end: 201211
  2. XALKORI [Suspect]
     Dosage: 200 MG, 1X/DAY
     Route: 048
  3. FLUCONAZOLE [Suspect]
     Indication: FUNGAL OESOPHAGITIS
     Dosage: 400 MG, 1X/DAY
     Route: 042
     Dates: start: 20121125, end: 20121209
  4. DALTEPARIN [Concomitant]
     Indication: PULMONARY EMBOLISM
     Dosage: 13500 IU, DAILY
  5. POTASSIUM CHLORIDE [Concomitant]
     Indication: HYPOKALAEMIA
     Dosage: UNK
     Route: 042
     Dates: start: 20121124, end: 20121203
  6. POTASSIUM PHOSPHATE [Concomitant]
     Indication: HYPOKALAEMIA
     Dosage: 22 MEQ, UNK
     Route: 042
     Dates: start: 20121127, end: 20121127

REACTIONS (11)
  - Upper gastrointestinal haemorrhage [Unknown]
  - Blood bilirubin increased [Recovered/Resolved]
  - Aspartate aminotransferase increased [Recovered/Resolved]
  - Alanine aminotransferase increased [Recovered/Resolved]
  - Gamma-glutamyltransferase increased [Recovered/Resolved]
  - Blood alkaline phosphatase increased [Recovered/Resolved]
  - Fungal oesophagitis [Recovering/Resolving]
  - Cholelithiasis [Unknown]
  - Hepatic steatosis [Unknown]
  - Pleural effusion [Unknown]
  - Nausea [Recovered/Resolved]
